FAERS Safety Report 25258519 (Version 1)
Quarter: 2025Q2

REPORT INFORMATION
  Report Type: Spontaneous
  Country: AU (occurrence: AU)
  Receive Date: 20250501
  Receipt Date: 20250501
  Transmission Date: 20250717
  Serious: Yes (Hospitalization)
  Sender: RANBAXY
  Company Number: AU-SUN PHARMACEUTICAL INDUSTRIES LTD-2025R1-505431

PATIENT
  Age: 39 Year
  Sex: Female

DRUGS (1)
  1. OCTREOTIDE [Suspect]
     Active Substance: OCTREOTIDE
     Indication: Pericardial effusion
     Route: 065

REACTIONS (3)
  - Factor II deficiency [Unknown]
  - Factor V Leiden mutation [Unknown]
  - Off label use [Unknown]
